FAERS Safety Report 7150553-8 (Version None)
Quarter: 2010Q4

REPORT INFORMATION
  Report Type: 
  Country: None (occurrence: None)
  Receive Date: 20101210
  Receipt Date: 20101203
  Transmission Date: 20110411
  Serious: Yes (Other)
  Sender: FDA-Public Use
  Company Number: US-AMGEN-USASP2010007222

PATIENT

DRUGS (2)
  1. NPLATE [Suspect]
     Indication: THROMBOCYTOPENIA
     Dosage: 250 A?G, UNK
     Dates: start: 20090604, end: 20090702
  2. NPLATE [Suspect]
     Dates: start: 20090604, end: 20090703

REACTIONS (2)
  - METASTATIC PAIN [None]
  - THERAPEUTIC RESPONSE DECREASED [None]
